FAERS Safety Report 5210000-X (Version None)
Quarter: 2006Q4

REPORT INFORMATION
  Report Type: 
  Country: None (occurrence: None)
  Receive Date: 20061130
  Receipt Date: 20060714
  Transmission Date: 20070319
  Serious: Yes (Life-Threatening, Disabling, Congenital Anomaly)
  Sender: FDA-Public Use
  Company Number: 2004US001493

PATIENT
  Age: 52 Year
  Sex: Male
  Weight: 97.1 kg

DRUGS (2)
  1. PROTOPIC [Suspect]
     Indication: ECZEMA
     Dosage: BID, TOPICAL
     Route: 061
     Dates: start: 20020117, end: 20020715
  2. PROTOPIC [Suspect]

REACTIONS (2)
  - ALCOHOL INTOLERANCE [None]
  - NON-HODGKIN'S LYMPHOMA [None]
